FAERS Safety Report 19280406 (Version 3)
Quarter: 2022Q2

REPORT INFORMATION
  Report Type: Report from Study
  Country: US (occurrence: US)
  Receive Date: 20210520
  Receipt Date: 20220419
  Transmission Date: 20220721
  Serious: No
  Sender: FDA-Public Use
  Company Number: US-NOVARTISTESTPH-NVSC2021US113504

PATIENT
  Age: 54 Year
  Sex: Female

DRUGS (3)
  1. KESIMPTA [Suspect]
     Active Substance: OFATUMUMAB
     Indication: Multiple sclerosis
     Dosage: 20 MG, QW (SOLUTION)
     Route: 058
     Dates: start: 20210512
  2. KESIMPTA [Suspect]
     Active Substance: OFATUMUMAB
     Dosage: UNK
     Route: 065
     Dates: start: 202109
  3. KESIMPTA [Suspect]
     Active Substance: OFATUMUMAB
     Dosage: 20 MG, QMO
     Route: 058
     Dates: start: 20211215

REACTIONS (5)
  - Anxiety [Recovering/Resolving]
  - Headache [Recovering/Resolving]
  - Sinusitis [Recovered/Resolved]
  - Cough [Recovered/Resolved]
  - Nasopharyngitis [Recovering/Resolving]

NARRATIVE: CASE EVENT DATE: 20210512
